FAERS Safety Report 25347192 (Version 1)
Quarter: 2025Q2

REPORT INFORMATION
  Report Type: Spontaneous
  Country: US (occurrence: None)
  Receive Date: 20250521
  Receipt Date: 20250521
  Transmission Date: 20250716
  Serious: Yes (Hospitalization)
  Sender: FDA-CTU
  Company Number: None

PATIENT
  Sex: Female
  Weight: 56.7 kg

DRUGS (2)
  1. OPSUMIT [Suspect]
     Active Substance: MACITENTAN
     Indication: Pulmonary arterial hypertension
     Dosage: FREQUENCY : DAILY;?
     Route: 048
     Dates: start: 20240126
  2. WINREVAIR [Suspect]
     Active Substance: SOTATERCEPT-CSRK

REACTIONS (5)
  - Therapy interrupted [None]
  - Fall [None]
  - Blood pressure decreased [None]
  - Urinary tract infection [None]
  - Sepsis [None]
